FAERS Safety Report 5004331-6 (Version None)
Quarter: 2006Q2

REPORT INFORMATION
  Report Type: 
  Country: None (occurrence: None)
  Receive Date: 20060517
  Receipt Date: 20051209
  Transmission Date: 20061013
  Serious: Yes (Hospitalization)
  Sender: FDA-Public Use
  Company Number: US-MERCK-0512USA01950

PATIENT
  Age: 54 Year
  Sex: Male
  Weight: 100 kg

DRUGS (5)
  1. VIOXX [Suspect]
     Indication: BACK PAIN
     Route: 048
     Dates: start: 20030101, end: 20040801
  2. VIOXX [Suspect]
     Route: 048
     Dates: start: 20030101, end: 20040801
  3. LIPITOR [Concomitant]
     Indication: BLOOD CHOLESTEROL INCREASED
     Route: 065
     Dates: start: 20030101
  4. ALTACE [Concomitant]
     Indication: HYPERTENSION
     Route: 065
     Dates: start: 20030101
  5. HYDROCHLOROTHIAZIDE AND TRIAMTERENE [Concomitant]
     Indication: HYPERTENSION
     Route: 065
     Dates: start: 20030101

REACTIONS (17)
  - ABDOMINAL HERNIA [None]
  - ABDOMINAL HERNIA REPAIR [None]
  - ARTERIOSCLEROSIS CORONARY ARTERY [None]
  - CAROTID ARTERY STENOSIS [None]
  - CEREBROVASCULAR DISORDER [None]
  - CHEST PAIN [None]
  - CORONARY ARTERY DISEASE [None]
  - ECZEMA [None]
  - ERECTILE DYSFUNCTION [None]
  - HYPERKERATOSIS [None]
  - HYPERTENSION [None]
  - INTERMITTENT CLAUDICATION [None]
  - MYOCARDIAL INFARCTION [None]
  - PAIN IN EXTREMITY [None]
  - PERIPHERAL VASCULAR DISORDER [None]
  - PRESCRIBED OVERDOSE [None]
  - PULSE PRESSURE DECREASED [None]
